FAERS Safety Report 5767657-4 (Version None)
Quarter: 2008Q2

REPORT INFORMATION
  Report Type: 
  Country: None (occurrence: None)
  Receive Date: 20080609
  Receipt Date: 20080527
  Transmission Date: 20081010
  Serious: Yes (Hospitalization)
  Sender: FDA-Public Use
  Company Number: 2008AL005891

PATIENT
  Age: 65 Year
  Sex: Male

DRUGS (1)
  1. DIGOXIN [Suspect]
     Dosage: .25MG DAILY PO
     Route: 048
     Dates: start: 20070608, end: 20070621

REACTIONS (3)
  - HYPERHIDROSIS [None]
  - PALPITATIONS [None]
  - SURGERY [None]
